FAERS Safety Report 9819766 (Version 4)
Quarter: 2015Q3

REPORT INFORMATION
  Report Type: Spontaneous
  Country: US (occurrence: US)
  Receive Date: 20140116
  Receipt Date: 20150917
  Transmission Date: 20151125
  Serious: Yes (Hospitalization, Other)
  Sender: FDA-Public Use
  Company Number: US-009507513-1401USA005234

PATIENT
  Sex: Male
  Weight: 93.88 kg

DRUGS (11)
  1. ZOCOR [Concomitant]
     Active Substance: SIMVASTATIN
     Route: 048
  2. GLUCOTROL XL [Concomitant]
     Active Substance: GLIPIZIDE
     Indication: DIABETES MELLITUS
     Dosage: 2.5 MG, QD
     Route: 048
  3. JANUVIA [Suspect]
     Active Substance: SITAGLIPTIN PHOSPHATE
     Indication: DIABETES MELLITUS
     Dosage: 100 MG, QD
     Route: 048
     Dates: start: 20140121
  4. JANUMET [Suspect]
     Active Substance: METFORMIN HYDROCHLORIDE\SITAGLIPTIN PHOSPHATE
     Indication: TYPE 2 DIABETES MELLITUS
     Dosage: 50/500 MG, BID
     Route: 048
     Dates: start: 20090423
  5. HYDROCHLOROTHIAZIDE. [Concomitant]
     Active Substance: HYDROCHLOROTHIAZIDE
     Route: 048
  6. GLUCOTROL XL [Concomitant]
     Active Substance: GLIPIZIDE
     Dosage: 5 MG, BID
     Dates: end: 20140121
  7. TRENTAL [Concomitant]
     Active Substance: PENTOXIFYLLINE
  8. COREG [Concomitant]
     Active Substance: CARVEDILOL
  9. JANUMET [Suspect]
     Active Substance: METFORMIN HYDROCHLORIDE\SITAGLIPTIN PHOSPHATE
     Dosage: 50/1000MG
     Route: 048
     Dates: start: 2009, end: 20140106
  10. PRINIVIL [Concomitant]
     Active Substance: LISINOPRIL
     Route: 048
  11. AMIODARONE [Concomitant]
     Active Substance: AMIODARONE

REACTIONS (37)
  - Bile duct cancer stage I [Unknown]
  - Cholangiocarcinoma [Unknown]
  - Neoplasm malignant [Unknown]
  - Cerebrovascular accident [Recovering/Resolving]
  - Hypertensive heart disease [Not Recovered/Not Resolved]
  - Periventricular leukomalacia [Unknown]
  - Myocardial ischaemia [Recovered/Resolved]
  - Diastolic dysfunction [Recovered/Resolved]
  - Deep vein thrombosis [Unknown]
  - Supraventricular extrasystoles [Not Recovered/Not Resolved]
  - Gastrooesophageal reflux disease [Not Recovered/Not Resolved]
  - Trousseau^s syndrome [Recovered/Resolved]
  - Chest pain [Not Recovered/Not Resolved]
  - Erectile dysfunction [Not Recovered/Not Resolved]
  - Nephropathy [Not Recovered/Not Resolved]
  - Pericardial effusion [Unknown]
  - Renal failure [Unknown]
  - Coronary artery disease [Not Recovered/Not Resolved]
  - Coagulopathy [Recovered/Resolved]
  - Spinal osteoarthritis [Unknown]
  - Pancreatic carcinoma [Not Recovered/Not Resolved]
  - Hyperlipidaemia [Unknown]
  - Cardiomegaly [Unknown]
  - Cardiomyopathy [Unknown]
  - Troponin increased [Unknown]
  - Pulmonary embolism [Unknown]
  - Peripheral vascular disorder [Not Recovered/Not Resolved]
  - Large intestine polyp [Not Recovered/Not Resolved]
  - Ventricular tachycardia [Recovered/Resolved]
  - Hypoglycaemia [Recovered/Resolved]
  - Metastases to liver [Not Recovered/Not Resolved]
  - Lung cancer metastatic [Not Recovered/Not Resolved]
  - Pulmonary hypertension [Recovered/Resolved]
  - Hypertension [Unknown]
  - Diverticulum [Unknown]
  - Acute kidney injury [Recovered/Resolved]
  - Mental status changes [Unknown]

NARRATIVE: CASE EVENT DATE: 20131211
